FAERS Safety Report 23679324 (Version 2)
Quarter: 2024Q2

REPORT INFORMATION
  Report Type: Spontaneous
  Country: CH (occurrence: CH)
  Receive Date: 20240327
  Receipt Date: 20240503
  Transmission Date: 20240716
  Serious: Yes (Death, Other)
  Sender: FDA-Public Use
  Company Number: CH-AMERICAN REGENT INC-2024001069

PATIENT
  Age: 87 Year
  Sex: Female
  Weight: 48 kg

DRUGS (6)
  1. FERINJECT [Suspect]
     Active Substance: FERRIC CARBOXYMALTOSE
     Indication: Iron deficiency anaemia
     Dosage: 1000 MILLIGRAM
     Dates: start: 20240204, end: 20240204
  2. RISPERDAL [Suspect]
     Active Substance: RISPERIDONE
     Indication: Delirium
     Dosage: MAXIMUM DOSAGE (2 MILLIGRAM, 1 IN 1 DAY)
     Route: 048
     Dates: start: 20240204, end: 202402
  3. RISPERDAL [Suspect]
     Active Substance: RISPERIDONE
     Indication: Restlessness
  4. ACETAMINOPHEN [Concomitant]
     Active Substance: ACETAMINOPHEN
     Indication: Pain management
     Dosage: IN TOTAL (1 GRAM, 1 IN 1 TOTAL)
     Route: 042
     Dates: start: 20240204
  5. FRAGMIN [Concomitant]
     Active Substance: DALTEPARIN SODIUM
     Indication: Thrombosis prophylaxis
     Dosage: 5000 INTERNATIONAL UNIT, 1 D
     Route: 058
     Dates: start: 20240203, end: 20240204
  6. PANTOPRAZOLE SODIUM [Concomitant]
     Active Substance: PANTOPRAZOLE SODIUM
     Indication: Dysphagia
     Dosage: REGULAR MEDICATION (40 MILLIGRAM, 12 HR)
     Route: 042

REACTIONS (7)
  - Hypertensive emergency [Fatal]
  - Chest pain [Fatal]
  - Nausea [Fatal]
  - Hypoxia [Fatal]
  - Micturition urgency [Fatal]
  - Tachycardia [Fatal]
  - Choking [Fatal]

NARRATIVE: CASE EVENT DATE: 20240204
